FAERS Safety Report 10934723 (Version 2)
Quarter: 2015Q2

REPORT INFORMATION
  Report Type: Spontaneous
  Country: US (occurrence: US)
  Receive Date: 20150320
  Receipt Date: 20150617
  Transmission Date: 20150821
  Serious: No
  Sender: FDA-Public Use
  Company Number: US-GALDERMA-US15000703

PATIENT
  Age: 68 Year
  Sex: Female

DRUGS (15)
  1. CETAPHIL DAILY FACIAL MOISTURIZER WITH SUNSCREEN SPF50+ [Concomitant]
     Indication: DRY SKIN PROPHYLAXIS
  2. MIRVASO [Suspect]
     Active Substance: BRIMONIDINE TARTRATE
     Indication: ROSACEA
     Dosage: 0.33%
     Route: 061
     Dates: start: 20140402, end: 20141022
  3. LISINOPRIL. [Concomitant]
     Active Substance: LISINOPRIL
     Indication: HYPERTENSION
     Dosage: 20 MG
     Route: 048
  4. ALLOPURINAL [Concomitant]
     Dosage: 100 MG
     Route: 048
  5. EFFEXOR [Concomitant]
     Active Substance: VENLAFAXINE HYDROCHLORIDE
     Route: 048
  6. FINACEA [Suspect]
     Active Substance: AZELAIC ACID
     Dosage: 15%
     Route: 061
     Dates: start: 201208, end: 201405
  7. VAGIFEM [Concomitant]
     Active Substance: ESTRADIOL
  8. ASTALIN [Concomitant]
     Active Substance: AZELASTINE HYDROCHLORIDE
  9. HYDROCHLOROTHIAZIDE. [Concomitant]
     Active Substance: HYDROCHLOROTHIAZIDE
     Indication: HYPERTENSION
  10. ZOCOR [Concomitant]
     Active Substance: SIMVASTATIN
  11. CETAPHIL DAILY FACIAL MOISTURIZER WITH SUNSCREEN SPF50+ [Concomitant]
     Indication: PROPHYLAXIS AGAINST SOLAR RADIATION
     Route: 061
  12. PRILOSEC [Concomitant]
     Active Substance: OMEPRAZOLE MAGNESIUM
     Indication: GASTROINTESTINAL ULCER
     Route: 048
  13. CETAPHIL [Concomitant]
     Active Substance: AVOBENZONE\OCTOCRYLENE\TRICLOSAN
     Indication: THERAPEUTIC SKIN CARE TOPICAL
     Route: 061
  14. HYDROCHLOROTHIAZIDE. [Concomitant]
     Active Substance: HYDROCHLOROTHIAZIDE
     Indication: DIURETIC THERAPY
     Dosage: 25 MG
     Route: 048
  15. MELOXICAM. [Concomitant]
     Active Substance: MELOXICAM
     Indication: ARTHRITIS
     Route: 048

REACTIONS (14)
  - Swelling face [Recovered/Resolved]
  - Emotional distress [Recovered/Resolved]
  - Dermatitis contact [Recovered/Resolved]
  - Eye swelling [Recovered/Resolved]
  - Product use issue [Recovered/Resolved]
  - Skin burning sensation [Recovered/Resolved]
  - Rash [Recovered/Resolved]
  - Rebound effect [Recovered/Resolved]
  - Ocular hyperaemia [Recovered/Resolved]
  - Insomnia [Recovered/Resolved]
  - Skin irritation [Recovered/Resolved]
  - Erythema [Recovered/Resolved]
  - Body temperature increased [Recovered/Resolved]
  - Skin injury [Recovered/Resolved]

NARRATIVE: CASE EVENT DATE: 201402
